FAERS Safety Report 10411715 (Version 2)
Quarter: 2014Q4

REPORT INFORMATION
  Report Type: Spontaneous
  Country: US (occurrence: None)
  Receive Date: 20140604
  Receipt Date: 20141010
  Transmission Date: 20150528
  Serious: Yes (Other)
  Sender: FDA-Public Use
  Company Number: 163-POMAL-14042908

PATIENT
  Age: 60 Year
  Sex: Female

DRUGS (3)
  1. POMALYST [Suspect]
     Active Substance: POMALIDOMIDE
     Indication: PLASMA CELL MYELOMA
     Route: 048
     Dates: start: 20130724
  2. PAMIDRONATE (PAMIDRONATE DISODIUM) [Concomitant]
  3. ZOMETA [Concomitant]
     Active Substance: ZOLEDRONIC ACID

REACTIONS (3)
  - Platelet count decreased [None]
  - Haemoglobin decreased [None]
  - Neutropenia [None]

NARRATIVE: CASE EVENT DATE: 2014
